FAERS Safety Report 6884506-1 (Version None)
Quarter: 2010Q3

REPORT INFORMATION
  Report Type: 
  Country: None (occurrence: None)
  Receive Date: 20100729
  Receipt Date: 20070712
  Transmission Date: 20110219
  Serious: Yes (Hospitalization, Other)
  Sender: FDA-Public Use
  Company Number: US-PFIZER INC-2007058029

PATIENT
  Sex: Male
  Weight: 95.3 kg

DRUGS (1)
  1. CELEBREX [Suspect]
     Indication: PAIN
     Dates: start: 19990901

REACTIONS (4)
  - ARTERIAL OCCLUSIVE DISEASE [None]
  - BACK INJURY [None]
  - CEREBROVASCULAR ACCIDENT [None]
  - NECK INJURY [None]
